FAERS Safety Report 7644138-4 (Version None)
Quarter: 2011Q3

REPORT INFORMATION
  Report Type: 
  Country: None (occurrence: None)
  Receive Date: 20110729
  Receipt Date: 20110722
  Transmission Date: 20111222
  Serious: Yes (Hospitalization)
  Sender: FDA-Public Use
  Company Number: SE-AMGEN-SWECT2011034211

PATIENT
  Age: 67 Year
  Sex: Male

DRUGS (2)
  1. ETANERCEPT [Suspect]
     Indication: RHEUMATOID ARTHRITIS
     Dosage: 50 MG, QWK
     Dates: start: 20051123, end: 20110616
  2. PREDNISOLONE [Concomitant]
     Dosage: UNK
     Dates: start: 20060519, end: 20080530

REACTIONS (1)
  - GENITAL NEOPLASM MALIGNANT MALE [None]
